FAERS Safety Report 8688332 (Version 2)
Quarter: 2013Q4

REPORT INFORMATION
  Report Type: Spontaneous
  Country: US (occurrence: US)
  Receive Date: 20120727
  Receipt Date: 20131031
  Transmission Date: 20140711
  Serious: No
  Sender: FDA-Public Use
  Company Number: US-009507513-2012SP023084

PATIENT
  Age: 34 Year
  Sex: Female
  Weight: 59.88 kg

DRUGS (6)
  1. CLARITIN [Suspect]
     Indication: SEASONAL ALLERGY
     Dosage: 10 MG, QD
     Route: 048
     Dates: start: 20120322, end: 20120402
  2. CLARITIN [Suspect]
     Indication: RHINORRHOEA
  3. CLARITIN [Suspect]
     Indication: SNEEZING
  4. CLARITIN [Suspect]
     Indication: EYE PRURITUS
  5. CLARITIN [Suspect]
     Indication: NASAL DISCOMFORT
  6. CLARITIN [Suspect]
     Indication: HOUSE DUST ALLERGY

REACTIONS (1)
  - No therapeutic response [Not Recovered/Not Resolved]
